FAERS Safety Report 23889832 (Version 1)
Quarter: 2024Q2

REPORT INFORMATION
  Report Type: Other
  Country: PR (occurrence: PR)
  Receive Date: 20240523
  Receipt Date: 20240523
  Transmission Date: 20240717
  Serious: Yes (Other)
  Sender: FDA-Public Use
  Company Number: PR-Innogenix, LLC-2157341

PATIENT
  Age: 69 Year
  Sex: Male

DRUGS (4)
  1. PILOCARPINE HYDRCHLORIDE [Suspect]
     Active Substance: PILOCARPINE HYDROCHLORIDE
     Indication: Glaucoma
     Route: 047
  2. CARTEOLOL HYDROCHLORIDE [Concomitant]
     Active Substance: CARTEOLOL HYDROCHLORIDE
     Route: 061
  3. ACETAZOLAMIDE [Concomitant]
     Active Substance: ACETAZOLAMIDE
     Route: 048
  4. BIMATOPROST [Concomitant]
     Active Substance: BIMATOPROST
     Route: 065

REACTIONS (2)
  - Vitreoretinal traction syndrome [Recovered/Resolved]
  - Product use in unapproved indication [Unknown]
